FAERS Safety Report 25620928 (Version 1)
Quarter: 2025Q3

REPORT INFORMATION
  Report Type: Spontaneous
  Country: US (occurrence: US)
  Receive Date: 20250730
  Receipt Date: 20250730
  Transmission Date: 20251021
  Serious: No
  Sender: AMNEAL
  Company Number: US-AMNEAL-2024-AMRX-02866

PATIENT
  Age: 63 Year
  Sex: Male

DRUGS (1)
  1. BACLOFEN [Suspect]
     Active Substance: BACLOFEN
     Indication: Muscle spasticity
     Dosage: 163.2 MICROGRAM, QD
     Route: 037

REACTIONS (2)
  - Drug effect less than expected [Unknown]
  - Device malfunction [Unknown]

NARRATIVE: CASE EVENT DATE: 20240625
